FAERS Safety Report 17314577 (Version 1)
Quarter: 2020Q1

REPORT INFORMATION
  Report Type: Spontaneous
  Country: GB (occurrence: GB)
  Receive Date: 20200124
  Receipt Date: 20200124
  Transmission Date: 20200409
  Serious: Yes (Other)
  Sender: FDA-Public Use
  Company Number: GB-TEVA-2020-GB-1171916

PATIENT
  Age: 68 Year
  Sex: Male
  Weight: 97 kg

DRUGS (8)
  1. INDAPAMIDE. [Suspect]
     Active Substance: INDAPAMIDE
     Dosage: 2.5 MG MORNING
     Dates: start: 20191111
  2. RAMIPRIL. [Concomitant]
     Active Substance: RAMIPRIL
     Dosage: 1 DOSAGE FORM
     Dates: start: 20190328
  3. HYDROXOCOBALAMIN [Concomitant]
     Active Substance: HYDROXOCOBALAMIN
     Dosage: 1 MG
     Dates: start: 20190307
  4. SIMVASTATIN. [Concomitant]
     Active Substance: SIMVASTATIN
     Dosage: 2 DOSAGE FORMS , NIGHT
     Dates: start: 20190207
  5. NIFEDIPRESS MR [Concomitant]
     Dosage: 2 DOSAGE FORMS
     Dates: start: 20191209
  6. FLUAD NOS [Concomitant]
     Active Substance: INFLUENZA VIRUS VACCINE
     Dosage: USE AS DIRECTED
     Dates: start: 20191025, end: 20191025
  7. METFORMIN [Concomitant]
     Active Substance: METFORMIN HYDROCHLORIDE
     Dosage: 4 DOSAGE FORMS
     Dates: start: 20190207
  8. ACETYLSALICYLIC ACID [Concomitant]
     Active Substance: ASPIRIN
     Dosage: 1 DOSAGE FORM, DISSOLVE ONE TABLET IN WATER AND TAKE AFTER BRE...
     Dates: start: 20190207

REACTIONS (1)
  - Acute kidney injury [Recovered/Resolved]

NARRATIVE: CASE EVENT DATE: 20191230
